FAERS Safety Report 21840368 (Version 1)
Quarter: 2023Q1

REPORT INFORMATION
  Report Type: Spontaneous
  Country: US (occurrence: US)
  Receive Date: 20230110
  Receipt Date: 20230110
  Transmission Date: 20230418
  Serious: No
  Sender: FDA-Public Use
  Company Number: US-SUN PHARMACEUTICAL INDUSTRIES LTD-2022R1-325837

PATIENT
  Age: 73 Year
  Sex: Female

DRUGS (1)
  1. DILTIAZEM [Suspect]
     Active Substance: DILTIAZEM
     Indication: Hypertension
     Dosage: UNK 1 CAPSULE
     Route: 048

REACTIONS (3)
  - Malaise [Unknown]
  - Dizziness [Unknown]
  - Chest discomfort [Unknown]
